FAERS Safety Report 9727527 (Version 2)
Quarter: 2013Q4

REPORT INFORMATION
  Report Type: Spontaneous
  Country: US (occurrence: US)
  Receive Date: 20131203
  Receipt Date: 20131203
  Transmission Date: 20140711
  Serious: Yes (Hospitalization)
  Sender: FDA-Public Use
  Company Number: US-GILEAD-2008-0018172

PATIENT
  Age: 57 Year
  Sex: Male
  Weight: 79.38 kg

DRUGS (5)
  1. VIREAD [Suspect]
     Indication: HIV INFECTION
  2. KALETRA [Concomitant]
  3. ZIAGEN [Concomitant]
  4. INSULIN [Concomitant]
  5. BYETTA [Concomitant]

REACTIONS (1)
  - Renal failure [Not Recovered/Not Resolved]
